FAERS Safety Report 25583591 (Version 1)
Quarter: 2025Q3

REPORT INFORMATION
  Report Type: Report from Study
  Country: EU (occurrence: EU)
  Receive Date: 20250721
  Receipt Date: 20250721
  Transmission Date: 20251020
  Serious: Yes (Hospitalization)
  Sender: Haleon PLC
  Company Number: EU-002147023-NVSC2023DE184708

PATIENT
  Sex: Male

DRUGS (4)
  1. DICLOFENAC SODIUM [Suspect]
     Active Substance: DICLOFENAC SODIUM
     Indication: Axial spondyloarthritis
     Dosage: 100 MG, QD, ROA: UNKNOWN
     Dates: start: 20211101
  2. COSENTYX [Concomitant]
     Active Substance: SECUKINUMAB
     Indication: Product used for unknown indication
  3. METHOTREXATE [Suspect]
     Active Substance: METHOTREXATE
     Indication: Axial spondyloarthritis
     Dosage: 15 MG, QW
     Route: 050
     Dates: start: 20160812
  4. COSENTYX [Suspect]
     Active Substance: SECUKINUMAB
     Indication: Axial spondyloarthritis
     Dosage: 150 MG, QMO,ROUTE OF ADMIN (FREE TEXT): INJECTION NOT OTHERWISE SPECIFIED, ROA: UNKNOWN
     Dates: start: 20171212

REACTIONS (1)
  - Tendon discomfort [Recovered/Resolved]

NARRATIVE: CASE EVENT DATE: 20230302
